FAERS Safety Report 12618183 (Version 1)
Quarter: 2016Q3

REPORT INFORMATION
  Report Type: Report from Study
  Country: US (occurrence: US)
  Receive Date: 20160803
  Receipt Date: 20160803
  Transmission Date: 20161109
  Serious: Yes (Hospitalization, Other)
  Sender: FDA-Public Use
  Company Number: US-BAYER-2015-115407

PATIENT
  Age: 46 Year
  Sex: Female
  Weight: 131.52 kg

DRUGS (19)
  1. ADEMPAS [Suspect]
     Active Substance: RIOCIGUAT
     Indication: PULMONARY HYPERTENSION
     Dosage: UNK
     Dates: start: 20150504
  2. ADEMPAS [Suspect]
     Active Substance: RIOCIGUAT
     Indication: PULMONARY HYPERTENSION
     Dosage: 2.5 MG, TID
     Dates: start: 20150504
  3. REMODULIN [Suspect]
     Active Substance: TREPROSTINIL
     Dosage: UNK
     Route: 058
     Dates: end: 201510
  4. ADEMPAS [Suspect]
     Active Substance: RIOCIGUAT
     Indication: PULMONARY HYPERTENSION
     Dosage: UNK
     Dates: start: 201410
  5. ADEMPAS [Suspect]
     Active Substance: RIOCIGUAT
     Indication: PULMONARY HYPERTENSION
     Dosage: 2.5 MG, TID
     Dates: start: 20150302
  6. TREPROSTINIL [Suspect]
     Active Substance: TREPROSTINIL
  7. ADEMPAS [Suspect]
     Active Substance: RIOCIGUAT
     Indication: PULMONARY HYPERTENSION
     Dosage: 2.5 MG, TID
     Route: 048
  8. ADEMPAS [Suspect]
     Active Substance: RIOCIGUAT
     Indication: PULMONARY HYPERTENSION
     Dosage: 2 MG, TID
     Route: 048
  9. LASIX [Concomitant]
     Active Substance: FUROSEMIDE
     Dosage: 40 MG, UNK
  10. ADEMPAS [Suspect]
     Active Substance: RIOCIGUAT
     Indication: PULMONARY HYPERTENSION
     Dosage: 2.5 MG, TID
  11. COUMADIN [Concomitant]
     Active Substance: WARFARIN SODIUM
  12. WARFARIN [Concomitant]
     Active Substance: WARFARIN
  13. ADEMPAS [Suspect]
     Active Substance: RIOCIGUAT
     Indication: PULMONARY HYPERTENSION
     Dosage: 2.5 MG, TID
     Route: 048
  14. METFORMIN [Concomitant]
     Active Substance: METFORMIN HYDROCHLORIDE
     Dosage: 500 MG, QD
  15. ADEMPAS [Suspect]
     Active Substance: RIOCIGUAT
     Indication: PULMONARY HYPERTENSION
     Dosage: 2.5 MG, TID
     Route: 048
  16. METFORMIN [Concomitant]
     Active Substance: METFORMIN HYDROCHLORIDE
     Dosage: 750 MG, UNK
  17. ADEMPAS [Suspect]
     Active Substance: RIOCIGUAT
     Indication: PULMONARY HYPERTENSION
     Dosage: 2 MG, TID
     Route: 048
  18. ADEMPAS [Suspect]
     Active Substance: RIOCIGUAT
     Indication: PULMONARY HYPERTENSION
     Dosage: 2.5 MG, TID
     Dates: start: 20150504
  19. TRACLEER [Concomitant]
     Active Substance: BOSENTAN

REACTIONS (35)
  - Drug dose omission [None]
  - Injection site inflammation [None]
  - Hospitalisation [Unknown]
  - Polyuria [None]
  - Catheter site infection [Unknown]
  - Constipation [Unknown]
  - Headache [Unknown]
  - Injection site irritation [Unknown]
  - Feeling hot [Unknown]
  - Urinary tract infection [None]
  - Injection site pain [None]
  - Fluid overload [None]
  - Nausea [Unknown]
  - Dehydration [Unknown]
  - Hypoglycaemia [None]
  - Injection site pruritus [Unknown]
  - Syncope [None]
  - Diarrhoea [Unknown]
  - Syncope [Unknown]
  - Dyspnoea [Recovered/Resolved]
  - Thrombosis [Unknown]
  - Dyspnoea [Unknown]
  - Syncope [None]
  - Injection site swelling [None]
  - Administration site rash [None]
  - Injection site infection [Unknown]
  - Flushing [Unknown]
  - Skin infection [None]
  - Injection site inflammation [Unknown]
  - Hot flush [Unknown]
  - Cardiac failure congestive [None]
  - Injection site pain [None]
  - Fluid retention [None]
  - Administration site erythema [None]
  - Investigation [Unknown]

NARRATIVE: CASE EVENT DATE: 20150428
